FAERS Safety Report 5427433-9 (Version None)
Quarter: 2007Q3

REPORT INFORMATION
  Report Type: 
  Country: None (occurrence: None)
  Receive Date: 20070828
  Receipt Date: 20070820
  Transmission Date: 20080115
  Serious: No
  Sender: FDA-Public Use
  Company Number: ES-ELI_LILLY_AND_COMPANY-US_000235944

PATIENT
  Age: 61 Year
  Sex: Male

DRUGS (4)
  1. GEMZAR [Suspect]
     Indication: NON-SMALL CELL LUNG CANCER
     Dosage: 1250 MG/M2, UNKNOWN
  2. GRANISETRON [Concomitant]
     Indication: NAUSEA
     Dosage: 3 MG, UNKNOWN
     Route: 042
  3. CODEINE SUL TAB [Concomitant]
     Dosage: UNK, UNKNOWN
  4. RADIATION THERAPY [Concomitant]
     Indication: NON-SMALL CELL LUNG CANCER
     Dosage: 24 UNK, UNKNOWN

REACTIONS (1)
  - RECALL PHENOMENON [None]
